FAERS Safety Report 7811258-0 (Version None)
Quarter: 2011Q4

REPORT INFORMATION
  Report Type: 
  Country: None (occurrence: None)
  Receive Date: 20111013
  Receipt Date: 20110817
  Transmission Date: 20120403
  Serious: Yes (Other)
  Sender: FDA-Public Use
  Company Number: DE-UCBSA-032185

PATIENT
  Age: 40 Year
  Sex: Male
  Weight: 87 kg

DRUGS (11)
  1. CAVIT D [Concomitant]
     Indication: OSTEOPOROSIS
     Dosage: SINGLE DOSE/ DAILY DOSE: 1000MG/880 IE
     Route: 048
     Dates: start: 20100906
  2. HAMATOPHAN [Concomitant]
     Indication: IRON DEFICIENCY ANAEMIA
     Route: 048
     Dates: start: 20101216
  3. SANDIMMUN OPT [Concomitant]
     Indication: SPONDYLITIS
     Route: 048
     Dates: start: 20110217, end: 20110328
  4. PANTOPRAZOLE SODIUM [Concomitant]
     Indication: GASTRITIS PROPHYLAXIS
     Route: 048
     Dates: start: 20110103
  5. CIMZIA [Suspect]
     Route: 058
     Dates: start: 20110217, end: 20110519
  6. CIMZIA [Suspect]
     Indication: RHEUMATOID ARTHRITIS
     Route: 058
     Dates: start: 20110106, end: 20110210
  7. ENTOCORT EC [Concomitant]
     Indication: COLITIS ULCERATIVE
     Route: 054
     Dates: start: 20110206
  8. PREDNISOLONE [Concomitant]
     Indication: SPONDYLITIS
     Route: 048
     Dates: start: 20110328
  9. CAVIT D [Concomitant]
     Indication: PROPHYLAXIS
     Dosage: SINGLE DOSE/ DAILY DOSE: 1000MG/880 IE
     Route: 048
     Dates: start: 20100906
  10. SANDIMMUN OPT [Concomitant]
     Route: 048
     Dates: start: 20110329
  11. PREDNISONE [Concomitant]
     Indication: SPONDYLITIS
     Route: 048
     Dates: start: 20110101

REACTIONS (3)
  - DRUG INEFFECTIVE [None]
  - COLITIS ULCERATIVE [None]
  - GASTROINTESTINAL INFECTION [None]
